FAERS Safety Report 6346709-4 (Version None)
Quarter: 2009Q3

REPORT INFORMATION
  Report Type: 
  Country: None (occurrence: None)
  Receive Date: 20090904
  Receipt Date: 20090827
  Transmission Date: 20100115
  Serious: Yes (Hospitalization)
  Sender: FDA-Public Use
  Company Number: 2009AL005650

PATIENT
  Age: 22 Month
  Sex: Female
  Weight: 10.6 kg

DRUGS (11)
  1. CARVEDILOL [Suspect]
     Dosage: 4.5 MG;BID
  2. DIGOXIN [Suspect]
     Dosage: 60 UG/KG;QD
  3. FUROSEMIDE [Concomitant]
  4. CAPTOPRIL [Concomitant]
  5. AMIODARONE HCL [Concomitant]
  6. MIDAZOLAM HCL [Concomitant]
  7. ACETAMINOPHEN [Concomitant]
  8. OXYGEN [Concomitant]
  9. SEVOFLURANE [Concomitant]
  10. REMIFENTANIL [Concomitant]
  11. MIVACURIUM [Concomitant]

REACTIONS (2)
  - CIRCULATORY COLLAPSE [None]
  - ELECTROMECHANICAL DISSOCIATION [None]
